FAERS Safety Report 6087135-5 (Version None)
Quarter: 2009Q1

REPORT INFORMATION
  Report Type: 
  Country: None (occurrence: None)
  Receive Date: 20090211
  Receipt Date: 20090120
  Transmission Date: 20090719
  Serious: Yes (Other)
  Sender: FDA-Public Use
  Company Number: CHPA2009US02437

PATIENT
  Age: 57 Year
  Sex: Female
  Weight: 68 kg

DRUGS (3)
  1. EXCEDRIN EXTRA STRENGTH (NCH)(CAFFEINE CITRATE, ACETYLSALICYLIC ACID, [Suspect]
     Indication: BACK PAIN
     Dosage: 2 DF, Q6H, ORAL
     Route: 048
     Dates: end: 20090119
  2. ^BIRTH CONTROL PILLS^ (UNKNOWN) [Concomitant]
  3. ^INHALERS^ (UNKNOWN) [Concomitant]

REACTIONS (2)
  - CHRONIC OBSTRUCTIVE PULMONARY DISEASE [None]
  - DRUG DEPENDENCE [None]
